FAERS Safety Report 6083205-6 (Version None)
Quarter: 2009Q1

REPORT INFORMATION
  Report Type: 
  Country: None (occurrence: None)
  Receive Date: 20090219
  Receipt Date: 20090212
  Transmission Date: 20090719
  Serious: Yes (Hospitalization)
  Sender: FDA-Public Use
  Company Number: FR-JNJFOC-20090101075

PATIENT
  Sex: Male

DRUGS (5)
  1. RISPERDAL CONSTA [Suspect]
     Route: 030
  2. RISPERDAL CONSTA [Suspect]
     Indication: MENTAL DISORDER
     Route: 030
  3. RISPERDAL [Suspect]
     Indication: MENTAL DISORDER
     Route: 048
  4. IMOVANE [Concomitant]
     Route: 065
  5. ZOLPIDEM [Concomitant]
     Route: 065

REACTIONS (3)
  - SUICIDE ATTEMPT [None]
  - TREATMENT NONCOMPLIANCE [None]
  - TREMOR [None]
